FAERS Safety Report 5338244-7 (Version None)
Quarter: 2007Q2

REPORT INFORMATION
  Report Type: 
  Country: None (occurrence: None)
  Receive Date: 20070329
  Receipt Date: 20070115
  Transmission Date: 20071010
  Serious: Yes (Hospitalization)
  Sender: FDA-Public Use
  Company Number: 3864

PATIENT
  Age: 22 Year
  Sex: Male

DRUGS (3)
  1. CIPROFLOXACIN [Suspect]
     Indication: PNEUMONIA
  2. DOXYCYCLINE [Concomitant]
  3. PIPERACILLIN/TAZOBACTAM(PIPERACILLIN, TAZOBACTAM) [Concomitant]

REACTIONS (1)
  - TORSADE DE POINTES [None]
